FAERS Safety Report 16734188 (Version 1)
Quarter: 2019Q3

REPORT INFORMATION
  Report Type: Spontaneous
  Country: US (occurrence: US)
  Receive Date: 20190823
  Receipt Date: 20190823
  Transmission Date: 20191005
  Serious: No
  Sender: FDA-Public Use
  Company Number: US-TEVA-2019-US-1096298

PATIENT
  Sex: Male

DRUGS (1)
  1. TESTOSTERONE. [Suspect]
     Active Substance: TESTOSTERONE
     Indication: BLOOD TESTOSTERONE DECREASED
     Dosage: DOSE STRENGTH:30/1.5MG/ML, TOPICAL SOLUTION
     Route: 061
     Dates: start: 20190613, end: 201907

REACTIONS (3)
  - Nipple pain [Recovered/Resolved]
  - Burning sensation [Recovered/Resolved]
  - Nipple inflammation [Recovered/Resolved]

NARRATIVE: CASE EVENT DATE: 20190613
